FAERS Safety Report 23377958 (Version 2)
Quarter: 2024Q1

REPORT INFORMATION
  Report Type: Spontaneous
  Country: CA (occurrence: CA)
  Receive Date: 20240108
  Receipt Date: 20240118
  Transmission Date: 20240409
  Serious: Yes (Other)
  Sender: FDA-Public Use
  Company Number: CA-JNJFOC-20240113085

PATIENT
  Age: 47 Year
  Sex: Male

DRUGS (4)
  1. SIMPONI [Suspect]
     Active Substance: GOLIMUMAB
     Indication: Product used for unknown indication
     Route: 058
  2. INDOMETHACIN [Suspect]
     Active Substance: INDOMETHACIN
  3. KETOROLAC [Suspect]
     Active Substance: KETOROLAC TROMETHAMINE
  4. SIMLANDI [Concomitant]
     Active Substance: ADALIMUMAB-RYVK

REACTIONS (3)
  - Pneumonia [Unknown]
  - Drug intolerance [Unknown]
  - Therapeutic product effect incomplete [Unknown]
